FAERS Safety Report 7398093-5 (Version None)
Quarter: 2011Q2

REPORT INFORMATION
  Report Type: 
  Country: None (occurrence: None)
  Receive Date: 20110406
  Receipt Date: 20110328
  Transmission Date: 20111010
  Serious: Yes (Hospitalization)
  Sender: FDA-Public Use
  Company Number: FR-ASTRAZENECA-2011SE18446

PATIENT
  Age: 35156 Day
  Sex: Female

DRUGS (6)
  1. ACUPAN [Suspect]
     Dates: start: 20101221, end: 20101227
  2. CARDENSIEL [Concomitant]
     Indication: HYPERTENSION
  3. TRAMADOL [Suspect]
     Route: 048
     Dates: start: 20101217, end: 20101227
  4. NEXIUM [Suspect]
     Route: 048
     Dates: start: 20101201, end: 20101227
  5. KARDEGIC [Concomitant]
     Indication: ATRIAL FIBRILLATION
  6. PARIET [Concomitant]
     Indication: ATRIAL FIBRILLATION

REACTIONS (2)
  - CYTOLYTIC HEPATITIS [None]
  - HEPATITIS CHOLESTATIC [None]
